FAERS Safety Report 4977458-2 (Version None)
Quarter: 2006Q2

REPORT INFORMATION
  Report Type: 
  Country: None (occurrence: None)
  Receive Date: 20060413
  Receipt Date: 20060403
  Transmission Date: 20061013
  Serious: Yes (Other)
  Sender: FDA-Public Use
  Company Number: 2006046460

PATIENT
  Age: 86 Year
  Sex: Male

DRUGS (1)
  1. ALPRAZOLAM [Suspect]
     Indication: INSOMNIA
     Dosage: 2 MG (2 MG, 1 IN 1 D), ORAL
     Route: 048
     Dates: start: 20050101

REACTIONS (1)
  - DIZZINESS [None]
